FAERS Safety Report 7598578-2 (Version None)
Quarter: 2011Q3

REPORT INFORMATION
  Report Type: 
  Country: None (occurrence: None)
  Receive Date: 20110708
  Receipt Date: 20110629
  Transmission Date: 20111222
  Serious: Yes (Hospitalization, Other)
  Sender: FDA-Public Use
  Company Number: US-ASTRAZENECA-2011SE18669

PATIENT
  Age: 52 Year
  Sex: Female

DRUGS (2)
  1. NEXIUM [Suspect]
     Route: 048
  2. PAIN MEDICATION [Concomitant]

REACTIONS (5)
  - DRUG DOSE OMISSION [None]
  - LUNG LOBECTOMY [None]
  - MALAISE [None]
  - LUNG NEOPLASM MALIGNANT [None]
  - MENTAL IMPAIRMENT [None]
